FAERS Safety Report 5007377-7 (Version None)
Quarter: 2006Q2

REPORT INFORMATION
  Report Type: 
  Country: None (occurrence: None)
  Receive Date: 20060517
  Receipt Date: 20060503
  Transmission Date: 20061013
  Serious: Yes (Death, Other)
  Sender: FDA-Public Use
  Company Number: 200512033BWH

PATIENT
  Sex: Male

DRUGS (14)
  1. CIPRO XR [Suspect]
  2. ALLOPURINOL [Suspect]
     Dosage: 300 MG, QD
  3. LEVAQUIN [Suspect]
  4. CEPHALEXIN [Suspect]
     Dosage: 500 MG, TID
  5. ZOSYN [Suspect]
  6. POTASSIUM [Concomitant]
  7. ISOSORBIDE MONONITRATE [Concomitant]
  8. COUMADIN [Concomitant]
  9. DIGOXIN [Concomitant]
  10. ATENOLOL [Concomitant]
  11. NEXIUM [Concomitant]
  12. HYDROCODONE [Concomitant]
  13. LASIX [Concomitant]
  14. ENALAPRIL [Concomitant]

REACTIONS (2)
  - STEVENS-JOHNSON SYNDROME [None]
  - TOXIC EPIDERMAL NECROLYSIS [None]
